FAERS Safety Report 11228478 (Version 1)
Quarter: 2015Q2

REPORT INFORMATION
  Report Type: Spontaneous
  Country: GB (occurrence: None)
  Receive Date: 20150626
  Receipt Date: 20150626
  Transmission Date: 20150821
  Serious: Yes (Other)
  Sender: FDA-Public Use
  Company Number: GB-H14001-15-00975

PATIENT
  Age: 49 Year
  Sex: Female

DRUGS (5)
  1. INDAPAMIDE. [Concomitant]
     Active Substance: INDAPAMIDE
  2. LISINOPRIL. [Concomitant]
     Active Substance: LISINOPRIL
  3. ACICLOVIR [Concomitant]
     Active Substance: ACYCLOVIR
  4. FLUCONAZOLE (FLUCONAZOLE) UNKNOWN (FLUCONAZOLE) [Suspect]
     Active Substance: FLUCONAZOLE
     Indication: PRODUCT USED FOR UNKNOWN INDICATION
     Dates: start: 20150609
  5. SODIUM FEREDETATE(SODIUM FEREDETATE) [Concomitant]

REACTIONS (2)
  - Swelling [None]
  - Rash [None]

NARRATIVE: CASE EVENT DATE: 20150609
